FAERS Safety Report 6387133-8 (Version None)
Quarter: 2009Q4

REPORT INFORMATION
  Report Type: 
  Country: None (occurrence: None)
  Receive Date: 20091002
  Receipt Date: 20090924
  Transmission Date: 20100525
  Serious: Yes (Other)
  Sender: FDA-Public Use
  Company Number: US-SANOFI-SYNTHELABO-A03200904431

PATIENT
  Sex: Female

DRUGS (2)
  1. PLAVIX [Suspect]
     Indication: DRUG USE FOR UNKNOWN INDICATION
     Dosage: 300 MG LOADING DOSE ONCE
     Route: 048
     Dates: start: 20010101, end: 20010101
  2. PLAVIX [Suspect]
     Route: 048
     Dates: start: 20010101

REACTIONS (2)
  - OPERATIVE HAEMORRHAGE [None]
  - VASCULAR RUPTURE [None]
